FAERS Safety Report 11411422 (Version 1)
Quarter: 2015Q3

REPORT INFORMATION
  Report Type: Spontaneous
  Country: US (occurrence: US)
  Receive Date: 20150821
  Receipt Date: 20150821
  Transmission Date: 20151125
  Serious: No
  Sender: FDA-Public Use
  Company Number: US-ELI_LILLY_AND_COMPANY-US201007002342

PATIENT
  Sex: Male

DRUGS (3)
  1. NOVOLIN R [Concomitant]
     Active Substance: INSULIN HUMAN
     Dosage: 6 U, UNK
  2. NOVOLIN [Concomitant]
     Active Substance: INSULIN HUMAN
  3. HUMULIN N [Suspect]
     Active Substance: INSULIN HUMAN
     Indication: DIABETES MELLITUS
     Dosage: 40 U, UNK
     Dates: start: 20100708, end: 20100708

REACTIONS (2)
  - Blood glucose increased [Unknown]
  - Wrong drug administered [Recovered/Resolved]

NARRATIVE: CASE EVENT DATE: 20100708
